FAERS Safety Report 19655390 (Version 1)
Quarter: 2021Q3

REPORT INFORMATION
  Report Type: Spontaneous
  Country: US (occurrence: US)
  Receive Date: 20210803
  Receipt Date: 20210803
  Transmission Date: 20211014
  Serious: Yes (Death)
  Sender: FDA-Public Use
  Company Number: None

PATIENT
  Age: 56 Year
  Sex: Male

DRUGS (1)
  1. FULPHILA [Suspect]
     Active Substance: PEGFILGRASTIM-JMDB
     Indication: AGRANULOCYTOSIS
     Dosage: ?          OTHER FREQUENCY:Q 21 DAY;?
     Route: 058
     Dates: start: 20210519, end: 20210727

REACTIONS (1)
  - Death [None]

NARRATIVE: CASE EVENT DATE: 20210727
